FAERS Safety Report 14538475 (Version 1)
Quarter: 2018Q1

REPORT INFORMATION
  Report Type: Spontaneous
  Country: US (occurrence: US)
  Receive Date: 20180216
  Receipt Date: 20180216
  Transmission Date: 20180509
  Serious: Yes (Other)
  Sender: FDA-Public Use
  Company Number: US-CIPLA LTD.-2017US22604

PATIENT

DRUGS (4)
  1. CARBOPLATIN. [Suspect]
     Active Substance: CARBOPLATIN
     Indication: GLIOMA
     Dosage: 640 MG/M2 IV OVER 1 HOUR ON THE FIRST DAY OF EACH CYCLE.
     Route: 042
  2. VINCRISTINE [Suspect]
     Active Substance: VINCRISTINE
     Indication: GLIOMA
     Dosage: 1.5 MG/M2 INTRAVENOUS (IV) BOLUS WEEKLY
     Route: 040
  3. VINBLASTINE [Suspect]
     Active Substance: VINBLASTINE
     Indication: GLIOMA
     Dosage: UNK, WEEKLY
     Route: 065
  4. ETOPOSIDE. [Suspect]
     Active Substance: ETOPOSIDE
     Indication: GLIOMA
     Dosage: 100 MG/M2 IV OVER 1 HOUR ON THE FIRST 3 DAYS OF EACH CYCLE
     Route: 042

REACTIONS (2)
  - Malignant neoplasm progression [Unknown]
  - Bone marrow failure [Unknown]
